FAERS Safety Report 4705053-9 (Version None)
Quarter: 2005Q3

REPORT INFORMATION
  Report Type: 
  Country: None (occurrence: None)
  Receive Date: 20050701
  Receipt Date: 20050623
  Transmission Date: 20060218
  Serious: Yes (Other)
  Sender: FDA-Public Use
  Company Number: PHEH2005US07098

PATIENT
  Age: 45 Year
  Sex: Male

DRUGS (2)
  1. DIOVAN HCT [Suspect]
     Indication: HYPERTENSION
     Dosage: 80/12.5 MG
     Dates: start: 20050620
  2. AUGMENTIN [Concomitant]
     Dates: start: 20050620

REACTIONS (2)
  - FACIAL PALSY [None]
  - VIITH NERVE PARALYSIS [None]
